FAERS Safety Report 7802086-0 (Version None)
Quarter: 2011Q4

REPORT INFORMATION
  Report Type: 
  Country: None (occurrence: None)
  Receive Date: 20111007
  Receipt Date: 20110927
  Transmission Date: 20120403
  Serious: Yes (Other)
  Sender: FDA-Public Use
  Company Number: US-ELI_LILLY_AND_COMPANY-US201108005811

PATIENT
  Sex: Male
  Weight: 78.458 kg

DRUGS (4)
  1. STRATTERA [Suspect]
     Dosage: 40 MG, QD
     Dates: end: 20110801
  2. ABILIFY [Concomitant]
     Indication: BIPOLAR DISORDER
     Dosage: 2.5 MG, UNKNOWN
  3. STRATTERA [Suspect]
     Indication: ATTENTION DEFICIT/HYPERACTIVITY DISORDER
     Dosage: 25 MG, QD
     Route: 048
     Dates: start: 20110701
  4. ABILIFY [Concomitant]
     Dosage: 5 MG, QD

REACTIONS (3)
  - SUICIDAL IDEATION [None]
  - AGITATION [None]
  - IRRITABILITY [None]
